FAERS Safety Report 8588318-2 (Version None)
Quarter: 2012Q3

REPORT INFORMATION
  Report Type: 
  Country: None (occurrence: None)
  Receive Date: 20120813
  Receipt Date: 20120731
  Transmission Date: 20120928
  Serious: Yes (Other)
  Sender: FDA-Public Use
  Company Number: US-ELI_LILLY_AND_COMPANY-US201110004770

PATIENT
  Sex: Female
  Weight: 47.166 kg

DRUGS (1)
  1. CYMBALTA [Suspect]
     Indication: DEPRESSION
     Dosage: 60 MG, QD
     Route: 048
     Dates: start: 20110713

REACTIONS (3)
  - MATERNAL EXPOSURE DURING PREGNANCY [None]
  - EXPOSURE DURING BREAST FEEDING [None]
  - PREMATURE LABOUR [None]
